FAERS Safety Report 5563724-9 (Version None)
Quarter: 2007Q4

REPORT INFORMATION
  Report Type: 
  Country: None (occurrence: None)
  Receive Date: 20071217
  Receipt Date: 20070801
  Transmission Date: 20080405
  Serious: No
  Sender: FDA-Public Use
  Company Number: US-ASTRAZENECA-2007UW18511

PATIENT
  Age: 65 Year
  Sex: Female

DRUGS (8)
  1. CRESTOR [Suspect]
     Route: 048
  2. PREDNISOLONE [Concomitant]
  3. THYROID TAB [Concomitant]
  4. ACIPHEX [Concomitant]
  5. AMBIEN [Concomitant]
  6. CARDIZEM CD [Concomitant]
  7. LOPRESSOR [Concomitant]
  8. MAXZIDE [Concomitant]

REACTIONS (2)
  - BREAST TENDERNESS [None]
  - CONTUSION [None]
